FAERS Safety Report 4724838-6 (Version None)
Quarter: 2005Q3

REPORT INFORMATION
  Report Type: 
  Country: None (occurrence: None)
  Receive Date: 20050726
  Receipt Date: 20050719
  Transmission Date: 20060218
  Serious: Yes (Hospitalization)
  Sender: FDA-Public Use
  Company Number: PHEH2005US08059

PATIENT
  Age: 82 Year
  Sex: Female

DRUGS (2)
  1. ENABLEX [Suspect]
     Dosage: 7.5 MG, QD
     Route: 048
  2. ENABLEX [Suspect]
     Dosage: 15 MG, QD

REACTIONS (1)
  - FAECAL INCONTINENCE [None]
